FAERS Safety Report 8235272-9 (Version None)
Quarter: 2012Q1

REPORT INFORMATION
  Report Type: 
  Country: None (occurrence: None)
  Receive Date: 20120322
  Receipt Date: 20120307
  Transmission Date: 20120608
  Serious: Yes (Other)
  Sender: FDA-Public Use
  Company Number: US-2012-10293

PATIENT
  Age: 59 Year
  Sex: Female

DRUGS (2)
  1. BUSULFAN [Suspect]
     Dosage: 0.8 MG/KG, INTRAVENOUS
     Route: 042
  2. DEFERASIROX (DEFERASIROX) [Concomitant]

REACTIONS (2)
  - DRUG CLEARANCE INCREASED [None]
  - DRUG INTERACTION [None]
